FAERS Safety Report 7658521-4 (Version None)
Quarter: 2011Q3

REPORT INFORMATION
  Report Type: 
  Country: None (occurrence: None)
  Receive Date: 20110805
  Receipt Date: 20110721
  Transmission Date: 20111222
  Serious: Yes (Hospitalization, Other)
  Sender: FDA-Public Use
  Company Number: US-ELI_LILLY_AND_COMPANY-US201105001235

PATIENT
  Sex: Female

DRUGS (19)
  1. FLUOXETINE HYDROCHLORIDE [Concomitant]
  2. FLECAINIDE ACETATE [Concomitant]
  3. GABAPENTIN [Concomitant]
  4. ATENOLOL [Concomitant]
  5. MELATONIN [Concomitant]
  6. FORTEO [Suspect]
     Dosage: 20 UG, QD
     Dates: start: 20110401
  7. FOLIC ACID W/VITAMIN B12 [Concomitant]
  8. LORA TAB [Concomitant]
  9. MORPHINE SULFATE [Concomitant]
  10. CALCITE [Concomitant]
  11. MULTI-VITAMIN [Concomitant]
  12. SYNTHROID [Concomitant]
  13. FOLTRIN [Concomitant]
  14. PRILOSEC [Concomitant]
  15. FORTEO [Suspect]
     Indication: OSTEOPOROSIS
     Dosage: 20 UG, QD
     Dates: end: 20101101
  16. DRISDOL [Concomitant]
  17. CALCIUM ACETATE [Concomitant]
  18. AMITRIPTYLINE HCL [Concomitant]
  19. HYDROCHLOROTHIAZIDE [Concomitant]

REACTIONS (8)
  - FALL [None]
  - LOSS OF CONSCIOUSNESS [None]
  - SKULL FRACTURE [None]
  - BALANCE DISORDER [None]
  - WALKING AID USER [None]
  - NERVOUS SYSTEM DISORDER [None]
  - ELECTROLYTE IMBALANCE [None]
  - INCOHERENT [None]
